FAERS Safety Report 24150462 (Version 1)
Quarter: 2024Q3

REPORT INFORMATION
  Report Type: Spontaneous
  Country: NL (occurrence: NL)
  Receive Date: 20240730
  Receipt Date: 20240730
  Transmission Date: 20241017
  Serious: Yes (Disabling)
  Sender: TEVA
  Company Number: None

PATIENT
  Age: 13 Year
  Sex: Male
  Weight: 47 kg

DRUGS (1)
  1. LEVOFLOXACIN [Suspect]
     Active Substance: LEVOFLOXACIN
     Indication: Infection
     Dosage: 1 PIECE ONCE PER DAY; LEVOFLOXACIN / BRAND NAME NOT SPECIFIED
     Route: 065
     Dates: start: 20240411

REACTIONS (1)
  - Tendonitis [Recovering/Resolving]
